FAERS Safety Report 4723857-3 (Version None)
Quarter: 2005Q3

REPORT INFORMATION
  Report Type: 
  Country: None (occurrence: None)
  Receive Date: 20050721
  Receipt Date: 20050701
  Transmission Date: 20060218
  Serious: Yes (Other)
  Sender: FDA-Public Use
  Company Number: USA050494664

PATIENT
  Age: 9 Year
  Sex: Male
  Weight: 45 kg

DRUGS (8)
  1. STRATTERA [Suspect]
     Indication: ATTENTION DEFICIT/HYPERACTIVITY DISORDER
     Dosage: 18 MG DAY
  2. CONCERTA [Concomitant]
  3. KALETRA [Concomitant]
  4. ZIAGEN [Concomitant]
  5. VIDEX [Concomitant]
  6. BACTRIM [Concomitant]
  7. ALBUTEROL [Concomitant]
  8. CROMOLYN (CROMOGLICIC ACID) [Concomitant]

REACTIONS (11)
  - ABDOMINAL PAIN UPPER [None]
  - CONVULSION [None]
  - CRYING [None]
  - DISORIENTATION [None]
  - DIZZINESS [None]
  - DROOLING [None]
  - DYSKINESIA [None]
  - ELECTROCARDIOGRAM QT PROLONGED [None]
  - HYPERHIDROSIS [None]
  - PYREXIA [None]
  - URINARY INCONTINENCE [None]
